FAERS Safety Report 5101997-7 (Version None)
Quarter: 2006Q3

REPORT INFORMATION
  Report Type: 
  Country: None (occurrence: None)
  Receive Date: 20060731
  Receipt Date: 20060511
  Transmission Date: 20061208
  Serious: No
  Sender: FDA-Public Use
  Company Number: 2006PV013680

PATIENT
  Age: 53 Year
  Sex: Female
  Weight: 95.2554 kg

DRUGS (2)
  1. BYETTA [Suspect]
     Indication: DIABETES MELLITUS NON-INSULIN-DEPENDENT
     Dosage: 5 MCG;BID;SC
     Route: 058
     Dates: start: 20060501
  2. GLUCOPHAGE [Concomitant]

REACTIONS (12)
  - ASTHENIA [None]
  - BLOOD GLUCOSE DECREASED [None]
  - BLOOD GLUCOSE INCREASED [None]
  - COUGH [None]
  - DYSGEUSIA [None]
  - EARLY SATIETY [None]
  - HYPERHIDROSIS [None]
  - MALAISE [None]
  - MENTAL IMPAIRMENT [None]
  - RETCHING [None]
  - STRESS [None]
  - VOMITING [None]
